FAERS Safety Report 7414270-9 (Version None)
Quarter: 2011Q2

REPORT INFORMATION
  Report Type: 
  Country: None (occurrence: None)
  Receive Date: 20110411
  Receipt Date: 20110411
  Transmission Date: 20111010
  Serious: Yes (Other)
  Sender: FDA-Public Use
  Company Number: None

PATIENT
  Age: 76 Year
  Sex: Female
  Weight: 53.978 kg

DRUGS (2)
  1. METOPROLOL TARTRATE [Suspect]
     Indication: HYPERTENSION
     Dosage: 1 TABLET DAILY PO
     Route: 048
     Dates: start: 20110405, end: 20110409
  2. METOPROLOL TARTRATE [Suspect]
     Indication: ARRHYTHMIA
     Dosage: 1 TABLET DAILY PO
     Route: 048
     Dates: start: 20110405, end: 20110409

REACTIONS (2)
  - PRODUCT SUBSTITUTION ISSUE [None]
  - ARRHYTHMIA [None]
